FAERS Safety Report 25284660 (Version 1)
Quarter: 2025Q2

REPORT INFORMATION
  Report Type: Spontaneous
  Country: US (occurrence: US)
  Receive Date: 20250508
  Receipt Date: 20250508
  Transmission Date: 20250717
  Serious: Yes (Hospitalization)
  Sender: SANOFI AVENTIS
  Company Number: US-SA-2025SA131942

PATIENT
  Age: 75 Year
  Sex: Male
  Weight: 100.45 kg

DRUGS (9)
  1. DUPIXENT [Suspect]
     Active Substance: DUPILUMAB
     Indication: Neurodermatitis
     Dosage: 300 MG, QOW
     Route: 058
     Dates: start: 202312
  2. MEDROL [Concomitant]
     Active Substance: METHYLPREDNISOLONE
  3. FLUCONAZOLE [Concomitant]
     Active Substance: FLUCONAZOLE
  4. LACTULOSE [Concomitant]
     Active Substance: LACTULOSE
  5. LORAZEPAM [Concomitant]
     Active Substance: LORAZEPAM
  6. BAQSIMI [Concomitant]
     Active Substance: GLUCAGON
  7. MAGNESIUM OXIDE [Concomitant]
     Active Substance: MAGNESIUM OXIDE
  8. ENTRESTO [Concomitant]
     Active Substance: SACUBITRIL\VALSARTAN
  9. XIFAXAN [Concomitant]
     Active Substance: RIFAXIMIN

REACTIONS (1)
  - Liver disorder [Unknown]

NARRATIVE: CASE EVENT DATE: 20250401
